FAERS Safety Report 9292782 (Version 1)
Quarter: 2013Q2

REPORT INFORMATION
  Report Type: Spontaneous
  Country: US (occurrence: US)
  Receive Date: 20130516
  Receipt Date: 20130516
  Transmission Date: 20140414
  Serious: Yes (Other)
  Sender: FDA-Public Use
  Company Number: PHEH2013US010637

PATIENT
  Sex: Female

DRUGS (8)
  1. RECLAST [Suspect]
     Dosage: UNK UKN, UNK
     Route: 042
     Dates: start: 201005
  2. RECLAST [Suspect]
     Dosage: UNK UKN, UNK
     Route: 042
     Dates: start: 201106
  3. RECLAST [Suspect]
     Dosage: UNK UKN, UNK
     Route: 042
     Dates: start: 20120711
  4. TYLENOL [Concomitant]
  5. PRILOSEC [Concomitant]
  6. CENTRUM [Concomitant]
  7. VITAMIN D [Concomitant]
  8. COQ [Concomitant]

REACTIONS (5)
  - Bone loss [Unknown]
  - Tooth loss [Unknown]
  - Fall [Unknown]
  - Injury [Unknown]
  - Bone density decreased [Unknown]
